FAERS Safety Report 14179787 (Version 3)
Quarter: 2018Q4

REPORT INFORMATION
  Report Type: Spontaneous
  Country: US (occurrence: US)
  Receive Date: 20171110
  Receipt Date: 20181220
  Transmission Date: 20190204
  Serious: Yes (Other)
  Sender: FDA-Public Use
  Company Number: US-BIOMARINAP-US-2017-116019

PATIENT
  Sex: Male

DRUGS (2)
  1. ALDURAZYME [Suspect]
     Active Substance: LARONIDASE
     Dosage: 12.6 MG, QW
     Route: 041
     Dates: start: 20151021
  2. ALDURAZYME [Suspect]
     Active Substance: LARONIDASE
     Indication: MUCOPOLYSACCHARIDOSIS I
     Dosage: UNK
     Route: 041
     Dates: start: 20040309

REACTIONS (4)
  - Corneal disorder [Recovered/Resolved]
  - Mobility decreased [Not Recovered/Not Resolved]
  - Gastric stenosis [Recovered/Resolved]
  - Musculoskeletal disorder [Not Recovered/Not Resolved]
